FAERS Safety Report 12255017 (Version 1)
Quarter: 2016Q2

REPORT INFORMATION
  Report Type: Not Available
  Country: US (occurrence: US)
  Receive Date: 20160411
  Receipt Date: 20160411
  Transmission Date: 20160815
  Serious: Yes (Hospitalization)
  Sender: FDA-Public Use
  Company Number: US-ANIPHARMA-2016-US-002206

PATIENT
  Age: 37 Year
  Sex: Male

DRUGS (3)
  1. OXYCODONE (NON-SPECIFIC) [Suspect]
     Active Substance: OXYCODONE
  2. HEROIN [Suspect]
     Active Substance: DIACETYLMORPHINE
  3. FENTANYL. [Suspect]
     Active Substance: FENTANYL

REACTIONS (2)
  - Drug withdrawal syndrome [Unknown]
  - Stress cardiomyopathy [Unknown]
